FAERS Safety Report 18619703 (Version 1)
Quarter: 2020Q4

REPORT INFORMATION
  Report Type: Spontaneous
  Country: IN (occurrence: IN)
  Receive Date: 20201215
  Receipt Date: 20201215
  Transmission Date: 20210114
  Serious: Yes (Death)
  Sender: FDA-Public Use
  Company Number: IN-PFIZER INC-2020493581

PATIENT
  Age: 71 Year
  Sex: Female

DRUGS (2)
  1. DACOPLICE [Suspect]
     Active Substance: DACOMITINIB
     Dosage: 45 MG, 1X/DAY
     Route: 048
  2. DACOPLICE [Suspect]
     Active Substance: DACOMITINIB
     Indication: LUNG ADENOCARCINOMA
     Dosage: 30 MG, 1X/DAY
     Route: 048
     Dates: start: 20201107

REACTIONS (1)
  - Death [Fatal]
